FAERS Safety Report 21186933 (Version 2)
Quarter: 2023Q1

REPORT INFORMATION
  Report Type: Spontaneous
  Country: CA (occurrence: CA)
  Receive Date: 20220808
  Receipt Date: 20230303
  Transmission Date: 20230417
  Serious: Yes (Hospitalization)
  Sender: FDA-Public Use
  Company Number: CA-TEVA-2022-CA-2062551

PATIENT
  Age: 53 Year
  Sex: Female

DRUGS (13)
  1. LORAZEPAM [Interacting]
     Active Substance: LORAZEPAM
     Indication: Product used for unknown indication
     Dosage: 1 MILLIGRAM DAILY;
     Route: 065
     Dates: end: 200903
  2. PROGESTERONE [Interacting]
     Active Substance: PROGESTERONE
     Indication: Product used for unknown indication
     Dosage: 100 MG
     Route: 065
     Dates: end: 200903
  3. VENLAFAXINE [Interacting]
     Active Substance: VENLAFAXINE HYDROCHLORIDE
     Indication: Product used for unknown indication
     Dosage: 150 MG
     Route: 065
  4. VARENICLINE [Interacting]
     Active Substance: VARENICLINE
     Indication: Product used for unknown indication
     Dosage: .5 MILLIGRAM DAILY;
     Route: 065
     Dates: end: 200903
  5. BUDESONIDE\FORMOTEROL FUMARATE [Interacting]
     Active Substance: BUDESONIDE\FORMOTEROL FUMARATE
     Indication: Product used for unknown indication
     Route: 065
  6. ESTRADIOL [Interacting]
     Active Substance: ESTRADIOL
     Indication: Product used for unknown indication
     Dosage: 50 MICROGRAM DAILY; PATCH CHANGED EVERY 2 WEEKS
     Route: 062
     Dates: end: 200903
  7. LACTOBACILLUS ACIDOPHILUS [Interacting]
     Active Substance: LACTOBACILLUS ACIDOPHILUS
     Indication: Product used for unknown indication
     Dosage: ADMINISTERED THREE TIMES DAILY, ACIDOPHILUS WITH BIFIDUS
     Route: 048
     Dates: start: 200810, end: 200903
  8. LINOLEIC ACID, CONJUGATED [Interacting]
     Active Substance: LINOLEIC ACID, CONJUGATED
     Indication: Product used for unknown indication
     Dosage: ADMINISTERED THREE TIMES DAILY
     Route: 048
     Dates: start: 200810, end: 200903
  9. SOMATROPIN [Interacting]
     Active Substance: SOMATROPIN
     Indication: Product used for unknown indication
     Route: 065
     Dates: start: 200809, end: 200812
  10. DIMETHYL SULFONE [Interacting]
     Active Substance: DIMETHYL SULFONE
     Indication: Product used for unknown indication
     Dosage: ADMINISTERED ONCE TO THREE TIMES DAILY, 1000 MG
     Route: 065
     Dates: start: 200810, end: 200903
  11. ARBONNE NUTRIMIN C RE9 REALITY SPF 8 DAY CREME [Interacting]
     Active Substance: OCTINOXATE\OXYBENZONE
     Indication: Product used for unknown indication
     Dosage: 4 DOSAGE FORMS DAILY;
     Route: 048
     Dates: start: 200810, end: 200903
  12. FISH OIL [Interacting]
     Active Substance: FISH OIL
     Indication: Product used for unknown indication
     Route: 048
     Dates: start: 200810, end: 200903
  13. VITAMIN D [Interacting]
     Active Substance: VITAMIN D NOS
     Indication: Product used for unknown indication
     Dosage: 1000 IU (INTERNATIONAL UNIT) DAILY;
     Route: 048
     Dates: start: 200810, end: 200903

REACTIONS (2)
  - Hepatotoxicity [Recovering/Resolving]
  - Drug interaction [Unknown]
